FAERS Safety Report 5342054-4 (Version None)
Quarter: 2007Q2

REPORT INFORMATION
  Report Type: 
  Country: None (occurrence: None)
  Receive Date: 20070530
  Receipt Date: 20070530
  Transmission Date: 20071010
  Serious: Yes (Other)
  Sender: FDA-Public Use
  Company Number: None

PATIENT
  Age: 52 Year
  Sex: Female
  Weight: 74.8435 kg

DRUGS (1)
  1. FEXOFENADINE HCL [Suspect]
     Indication: MULTIPLE ALLERGIES
     Dosage: 1 DAILY PO
     Route: 048
     Dates: start: 20070510, end: 20070515

REACTIONS (6)
  - DIZZINESS [None]
  - DRY EYE [None]
  - GASTROINTESTINAL DISORDER [None]
  - HYPERSENSITIVITY [None]
  - INSOMNIA [None]
  - NAUSEA [None]
